FAERS Safety Report 7072572-2 (Version None)
Quarter: 2010Q4

REPORT INFORMATION
  Report Type: 
  Country: None (occurrence: None)
  Receive Date: 20101029
  Receipt Date: 20100215
  Transmission Date: 20110411
  Serious: No
  Sender: FDA-Public Use
  Company Number: A0844497A

PATIENT
  Age: 66 Year
  Sex: Male

DRUGS (4)
  1. ADVAIR DISKUS 100/50 [Suspect]
     Indication: CHRONIC OBSTRUCTIVE PULMONARY DISEASE
     Route: 055
     Dates: start: 20091211, end: 20091219
  2. ALBUTEROL [Concomitant]
  3. BROVANA [Concomitant]
  4. IPRATROPIUM BROMIDE [Concomitant]

REACTIONS (1)
  - DRUG INEFFECTIVE [None]
